FAERS Safety Report 12986710 (Version 1)
Quarter: 2016Q4

REPORT INFORMATION
  Report Type: Spontaneous
  Country: US (occurrence: US)
  Receive Date: 20161129
  Receipt Date: 20161129
  Transmission Date: 20170207
  Serious: Yes (Other)
  Sender: FDA-Public Use
  Company Number: None

PATIENT
  Age: 58 Year
  Sex: Male
  Weight: 56.25 kg

DRUGS (1)
  1. BRIMONIDINE TARTRATE. [Suspect]
     Active Substance: BRIMONIDINE TARTRATE
     Indication: GLAUCOMA
     Dosage: ?          QUANTITY:1 OUNCE(S);?
     Route: 047
     Dates: start: 20161001, end: 20161123

REACTIONS (6)
  - Visual impairment [None]
  - Asthenia [None]
  - Abnormal behaviour [None]
  - Decreased appetite [None]
  - Eye irritation [None]
  - Constipation [None]

NARRATIVE: CASE EVENT DATE: 20161117
